FAERS Safety Report 24428176 (Version 1)
Quarter: 2024Q4

REPORT INFORMATION
  Report Type: Spontaneous
  Country: CN (occurrence: CN)
  Receive Date: 20241011
  Receipt Date: 20241011
  Transmission Date: 20250114
  Serious: Yes (Hospitalization)
  Sender: BAXTER
  Company Number: None

PATIENT
  Age: 46 Year
  Sex: Female
  Weight: 43 kg

DRUGS (10)
  1. CYCLOPHOSPHAMIDE [Suspect]
     Active Substance: CYCLOPHOSPHAMIDE
     Indication: Breast cancer female
     Dosage: 770 MG, ONE TIME IN ONE DAY, FIRST CHEMOTHERAPY
     Route: 041
     Dates: start: 20240816
  2. CYCLOPHOSPHAMIDE [Suspect]
     Active Substance: CYCLOPHOSPHAMIDE
     Indication: Chemotherapy
     Dosage: 770 MG, ONE TIME IN ONE DAY, DILUTED WITH 100 ML OF 0.9% SODIUM CHLORIDE, SECOND CHEMOTHERAPY
     Route: 041
     Dates: start: 20240906, end: 20240906
  3. SODIUM CHLORIDE [Suspect]
     Active Substance: SODIUM CHLORIDE
     Indication: Medication dilution
     Dosage: (0.9%) 100 ML, ONE TIME IN ONE DAY, USED TO DILUTE 770 MG OF CYCLOPHOSPHAMIDE
     Route: 041
     Dates: start: 20240906, end: 20240906
  4. DEXTROSE [Suspect]
     Active Substance: DEXTROSE MONOHYDRATE
     Indication: Medication dilution
     Dosage: (5%) 100 ML, ONE TIME IN ONE DAY, USED TO DILUTE 64 MG OF PIRARUBICIN
     Route: 041
     Dates: start: 20240906, end: 20240906
  5. PIRARUBICIN HYDROCHLORIDE [Suspect]
     Active Substance: PIRARUBICIN HYDROCHLORIDE
     Indication: Breast cancer female
     Dosage: 64 MG, ONE TIME IN ONE DAY, FIRST CHEMOTHERAPY
     Route: 041
     Dates: start: 20240816
  6. PIRARUBICIN HYDROCHLORIDE [Suspect]
     Active Substance: PIRARUBICIN HYDROCHLORIDE
     Indication: Chemotherapy
     Dosage: 64 MG, ONE TIME IN ONE DAY, DILUTED WITH 100 ML OF 5% GLUCOSE, SECOND CHEMOTHERAPY
     Route: 041
     Dates: start: 20240906, end: 20240906
  7. GLUCUROLACTONE [Concomitant]
     Active Substance: GLUCUROLACTONE
     Indication: Prophylaxis
     Dosage: UNK
     Route: 065
     Dates: start: 20240905
  8. GLUCUROLACTONE [Concomitant]
     Active Substance: GLUCUROLACTONE
     Indication: Enzyme level increased
  9. HERBALS\DIAMMONIUM GLYCYRRHIZINATE [Concomitant]
     Active Substance: HERBALS\DIAMMONIUM GLYCYRRHIZINATE
     Indication: Prophylaxis
     Dosage: UNK
     Route: 065
     Dates: start: 20240905
  10. HERBALS\DIAMMONIUM GLYCYRRHIZINATE [Concomitant]
     Active Substance: HERBALS\DIAMMONIUM GLYCYRRHIZINATE
     Indication: Enzyme level increased

REACTIONS (1)
  - Drug-induced liver injury [Recovering/Resolving]

NARRATIVE: CASE EVENT DATE: 20240913
